FAERS Safety Report 7731815-X (Version None)
Quarter: 2011Q3

REPORT INFORMATION
  Report Type: 
  Country: None (occurrence: None)
  Receive Date: 20110906
  Receipt Date: 20110901
  Transmission Date: 20111222
  Serious: Yes (Other)
  Sender: FDA-Public Use
  Company Number: PHHY2011CA77819

PATIENT
  Sex: Female

DRUGS (2)
  1. ZOLEDRONOC ACID [Suspect]
     Dosage: UNK UKN, UNK
     Route: 042
     Dates: start: 20091001
  2. ZOLEDRONOC ACID [Suspect]
     Dosage: UNK UKN, UNK
     Route: 042
     Dates: start: 20101101

REACTIONS (10)
  - GROIN PAIN [None]
  - MUSCULOSKELETAL DISCOMFORT [None]
  - ABDOMINAL DISCOMFORT [None]
  - BACK PAIN [None]
  - HYPOAESTHESIA [None]
  - RENAL DISORDER [None]
  - MALAISE [None]
  - ARTHRALGIA [None]
  - MULTIPLE FRACTURES [None]
  - DRY MOUTH [None]
